FAERS Safety Report 12975242 (Version 1)
Quarter: 2016Q4

REPORT INFORMATION
  Report Type: Spontaneous
  Country: RU (occurrence: RU)
  Receive Date: 20161125
  Receipt Date: 20161125
  Transmission Date: 20170207
  Serious: Yes (Other)
  Sender: FDA-Public Use
  Company Number: RU-ASTRAZENECA-2016SF25371

PATIENT
  Age: 38 Year
  Sex: Female
  Weight: 98 kg

DRUGS (3)
  1. ESSENTIALE [Concomitant]
  2. FORXIGA [Suspect]
     Active Substance: DAPAGLIFLOZIN
     Indication: TYPE 2 DIABETES MELLITUS
     Route: 048
     Dates: start: 20160501
  3. LISINOPRIL. [Concomitant]
     Active Substance: LISINOPRIL

REACTIONS (2)
  - Genital infection [Not Recovered/Not Resolved]
  - Partial seizures [Not Recovered/Not Resolved]
